FAERS Safety Report 9747947 (Version 1)
Quarter: 2013Q4

REPORT INFORMATION
  Report Type: Spontaneous
  Country: US (occurrence: US)
  Receive Date: 20131212
  Receipt Date: 20131212
  Transmission Date: 20140711
  Serious: Yes (Other)
  Sender: FDA-Public Use
  Company Number: US-TEVA-388046USA

PATIENT
  Age: 32 Year
  Sex: Female
  Weight: 74.91 kg

DRUGS (1)
  1. PARAGARD 380A [Suspect]
     Indication: CONTRACEPTION
     Route: 015
     Dates: start: 200710

REACTIONS (6)
  - Embedded device [Not Recovered/Not Resolved]
  - Vaginal discharge [Not Recovered/Not Resolved]
  - Dyspareunia [Not Recovered/Not Resolved]
  - Pain [Recovered/Resolved]
  - Metrorrhagia [Not Recovered/Not Resolved]
  - Nausea [Not Recovered/Not Resolved]
